FAERS Safety Report 5195743-9 (Version None)
Quarter: 2007Q1

REPORT INFORMATION
  Report Type: 
  Country: None (occurrence: None)
  Receive Date: 20070102
  Receipt Date: 20061227
  Transmission Date: 20070707
  Serious: Yes (Life-Threatening, Hospitalization)
  Sender: FDA-Public Use
  Company Number: 2006SE06932

PATIENT
  Age: 78 Year
  Sex: Male

DRUGS (3)
  1. BLOPRESS TABLETS 4 [Suspect]
     Indication: CARDIAC FAILURE CHRONIC
     Route: 048
     Dates: start: 20061014, end: 20061221
  2. LUPRAC [Concomitant]
     Route: 048
  3. DIART [Concomitant]
     Route: 048

REACTIONS (1)
  - CARDIAC FAILURE CHRONIC [None]
